FAERS Safety Report 4334203-1 (Version None)
Quarter: 2004Q2

REPORT INFORMATION
  Report Type: 
  Country: None (occurrence: None)
  Receive Date: 20040402
  Receipt Date: 20040324
  Transmission Date: 20050107
  Serious: Yes (Death, Hospitalization, Disabling)
  Sender: FDA-Public Use
  Company Number: 2004UW05953

PATIENT
  Age: 84 Year
  Sex: Male

DRUGS (3)
  1. IRESSA [Suspect]
     Dates: start: 20040202, end: 20040215
  2. METHADONE HCL [Suspect]
  3. DEXAMETHADONE [Concomitant]

REACTIONS (9)
  - AGITATION [None]
  - ASTHENIA [None]
  - DEHYDRATION [None]
  - DISORIENTATION [None]
  - DRUG INTERACTION [None]
  - DRUG TOXICITY [None]
  - NAUSEA [None]
  - SOMNOLENCE [None]
  - VOMITING [None]
